FAERS Safety Report 17583672 (Version 8)
Quarter: 2021Q1

REPORT INFORMATION
  Report Type: Spontaneous
  Country: US (occurrence: US)
  Receive Date: 20200326
  Receipt Date: 20210309
  Transmission Date: 20210419
  Serious: No
  Sender: FDA-Public Use
  Company Number: US-BIOGEN-2020BI00853980

PATIENT
  Sex: Female

DRUGS (2)
  1. TECFIDERA [Suspect]
     Active Substance: DIMETHYL FUMARATE
     Indication: MULTIPLE SCLEROSIS
     Dosage: STARTING DOSE
     Route: 048
     Dates: start: 20190924, end: 20190930
  2. TECFIDERA [Suspect]
     Active Substance: DIMETHYL FUMARATE
     Dosage: MAINTENANCE DOSE
     Route: 048
     Dates: start: 20191001

REACTIONS (6)
  - Decreased immune responsiveness [Unknown]
  - Visual acuity reduced [Recovered/Resolved]
  - Nasopharyngitis [Unknown]
  - Burning sensation [Unknown]
  - Multiple sclerosis [Not Recovered/Not Resolved]
  - Spinal stenosis [Recovered/Resolved]
